FAERS Safety Report 18734566 (Version 1)
Quarter: 2021Q1

REPORT INFORMATION
  Report Type: Report from Study
  Country: CA (occurrence: CA)
  Receive Date: 20210113
  Receipt Date: 20210113
  Transmission Date: 20210419
  Serious: Yes (Hospitalization, Other)
  Sender: FDA-Public Use
  Company Number: CA-SHIRE-CA202012026

PATIENT
  Age: 79 Year
  Sex: Male

DRUGS (2)
  1. GAMMAGARD LIQUID [Suspect]
     Active Substance: HUMAN IMMUNOGLOBULIN G
     Indication: MYASTHENIA GRAVIS
     Dosage: 22 GRAM, 1X/WEEK
     Route: 058
     Dates: start: 20181229
  2. GAMMAGARD LIQUID [Suspect]
     Active Substance: HUMAN IMMUNOGLOBULIN G
     Dosage: 15 MILLIGRAM, 1/WEEK
     Route: 065
     Dates: start: 20181229

REACTIONS (4)
  - Off label use [None]
  - Cough [Unknown]
  - Intentional product use issue [Unknown]
  - Coronavirus infection [Unknown]
